FAERS Safety Report 14955973 (Version 2)
Quarter: 2018Q2

REPORT INFORMATION
  Report Type: Spontaneous
  Country: DE (occurrence: DE)
  Receive Date: 20180531
  Receipt Date: 20180609
  Transmission Date: 20180711
  Serious: Yes (Hospitalization)
  Sender: FDA-Public Use
  Company Number: DE-AUROBINDO-AUR-APL-2018-027852

PATIENT
  Age: 79 Year
  Sex: Female
  Weight: 49 kg

DRUGS (28)
  1. PAROXETIN                          /00830801/ [Concomitant]
     Active Substance: PAROXETINE HYDROCHLORIDE
     Indication: PRODUCT USED FOR UNKNOWN INDICATION
     Dosage: 20 MILLIGRAM, ONCE A DAY
     Route: 048
  2. NEUPRO [Concomitant]
     Active Substance: ROTIGOTINE
     Indication: PRODUCT USED FOR UNKNOWN INDICATION
     Dosage: 1 MILLIGRAM, ONCE A DAY
     Route: 062
  3. MOVICOL [Concomitant]
     Active Substance: POLYETHYLENE GLYCOL 3350\POTASSIUM CHLORIDE\SODIUM BICARBONATE\SODIUM CHLORIDE
     Indication: PRODUCT USED FOR UNKNOWN INDICATION
     Dosage: 13.125|0.35|0.18|0.05 G, 1-0-0-0, GRANULAT , ONCE A DAY
     Route: 048
  4. SEROQUEL [Concomitant]
     Active Substance: QUETIAPINE FUMARATE
     Indication: PRODUCT USED FOR UNKNOWN INDICATION
     Dosage: 25 MILLIGRAM
     Route: 048
  5. PREGABALIN. [Concomitant]
     Active Substance: PREGABALIN
     Indication: PRODUCT USED FOR UNKNOWN INDICATION
     Dosage: 75 MILLIGRAM, TWO TIMES A DAY
     Route: 048
  6. NEUPRO [Concomitant]
     Active Substance: ROTIGOTINE
     Dosage: 1 DF, QD
     Route: 062
  7. IBUPROFEN. [Concomitant]
     Active Substance: IBUPROFEN
     Indication: PRODUCT USED FOR UNKNOWN INDICATION
     Dosage: 600 MILLIGRAM, 3 TIMES A DAY
     Route: 048
  8. IBUPROFEN. [Concomitant]
     Active Substance: IBUPROFEN
     Dosage: 1 DF, TID
     Route: 048
  9. NATRIUMFLUORID [Concomitant]
     Indication: PRODUCT USED FOR UNKNOWN INDICATION
     Dosage: 3 DF, QD
     Route: 048
  10. HYDROCHLOROTHIAZIDE TABLETS [Suspect]
     Active Substance: HYDROCHLOROTHIAZIDE
     Indication: PRODUCT USED FOR UNKNOWN INDICATION
     Dosage: 12.5 MILLIGRAM, ONCE A DAY
     Route: 048
  11. MADOPAR [Concomitant]
     Active Substance: BENSERAZIDE HYDROCHLORIDE\LEVODOPA
     Dosage: 6X0.5 DF ()
     Route: 048
  12. NACOM [Concomitant]
     Active Substance: CARBIDOPA\LEVODOPA
     Indication: PRODUCT USED FOR UNKNOWN INDICATION
     Dosage: 200|50 MG, 1-0-1-0, RETARD-TABLETTEN ()
     Route: 048
  13. NOVAMINSULFON [Concomitant]
     Active Substance: METAMIZOLE
     Dosage: 2 DF, QID
     Route: 048
  14. EXELON [Concomitant]
     Active Substance: RIVASTIGMINE TARTRATE
     Indication: PRODUCT USED FOR UNKNOWN INDICATION
     Dosage: 4.6 MILLIGRAM, ONCE A DAY
     Route: 062
  15. NACOM [Concomitant]
     Active Substance: CARBIDOPA\LEVODOPA
     Dosage: 1 DF, BID
     Route: 048
  16. LEVOTHYROXINE. [Concomitant]
     Active Substance: LEVOTHYROXINE
     Indication: PRODUCT USED FOR UNKNOWN INDICATION
     Dosage: 50 MICROGRAM/KILOGRAM, ONCE A DAY
     Route: 048
  17. NATRIUMCHLORID NORIDEM [Concomitant]
     Active Substance: SODIUM CHLORIDE
     Indication: PRODUCT USED FOR UNKNOWN INDICATION
     Dosage: 1-1-1-0, KAPSELN ()
     Route: 048
  18. MAGNESIUM VERLA                    /01455601/ [Concomitant]
     Indication: PRODUCT USED FOR UNKNOWN INDICATION
     Dosage: UNK UNK, ONCE A DAY
     Route: 048
  19. NOVAMINSULFON [Concomitant]
     Active Substance: METAMIZOLE
     Indication: PRODUCT USED FOR UNKNOWN INDICATION
     Dosage: 500 MILLIGRAM, 2-2-2-2
     Route: 048
  20. IBUPROFEN. [Concomitant]
     Active Substance: IBUPROFEN
     Dosage: 600 MG, 1-1-1-0, TABLETTEN ()
     Route: 048
  21. PANTOPRAZOL                        /01263201/ [Concomitant]
     Active Substance: PANTOPRAZOLE
     Indication: PRODUCT USED FOR UNKNOWN INDICATION
     Dosage: 40 MILLIGRAM, ONCE A DAY
     Route: 048
  22. MONO-EMBOLEX [Concomitant]
     Active Substance: CERTOPARIN SODIUM
     Indication: PRODUCT USED FOR UNKNOWN INDICATION
     Dosage: 3000 INTERNATIONAL UNIT, ONCE A DAY
     Route: 058
  23. ZOPICLON [Concomitant]
     Active Substance: ZOPICLONE
     Indication: PRODUCT USED FOR UNKNOWN INDICATION
     Dosage: 3.75 MILLIGRAM, ONCE A DAY
     Route: 048
  24. MOVICOL [Concomitant]
     Active Substance: POLYETHYLENE GLYCOL 3350\POTASSIUM CHLORIDE\SODIUM BICARBONATE\SODIUM CHLORIDE
     Dosage: 1 DF (13.125/0.35/0.18/0.05 G), QD
     Route: 048
  25. SEROQUEL [Concomitant]
     Active Substance: QUETIAPINE FUMARATE
     Dosage: 3 DF, QD
     Route: 048
  26. PREGABALIN. [Concomitant]
     Active Substance: PREGABALIN
     Dosage: 1 DF, BID
     Route: 048
  27. MADOPAR [Concomitant]
     Active Substance: BENSERAZIDE HYDROCHLORIDE\LEVODOPA
     Indication: PRODUCT USED FOR UNKNOWN INDICATION
     Dosage: 100|25 MG, 6X0.5, TABLETTEN ()
     Route: 048
  28. CALCIUM CARBONATE W/CITRIC ACID [Concomitant]
     Indication: PRODUCT USED FOR UNKNOWN INDICATION
     Dosage: 600 MILLIGRAM, ONCE A DAY
     Route: 048

REACTIONS (7)
  - General physical health deterioration [Unknown]
  - Dehydration [Unknown]
  - Vomiting [Unknown]
  - Dyspnoea [Unknown]
  - Drug prescribing error [Unknown]
  - Disorientation [Unknown]
  - Chest pain [Unknown]
